FAERS Safety Report 10160335 (Version 1)
Quarter: 2014Q2

REPORT INFORMATION
  Report Type: Spontaneous
  Country: CA (occurrence: CA)
  Receive Date: 20140508
  Receipt Date: 20140508
  Transmission Date: 20141212
  Serious: Yes (Other)
  Sender: FDA-Public Use
  Company Number: CA-GLAXOSMITHKLINE-A1072165A

PATIENT
  Sex: Female

DRUGS (3)
  1. ADVAIR [Suspect]
     Indication: EMPHYSEMA
     Route: 055
  2. PROLIA [Concomitant]
  3. SPIRIVA [Concomitant]

REACTIONS (2)
  - Cataract operation [Unknown]
  - Photophobia [Unknown]
